FAERS Safety Report 5175228-6 (Version None)
Quarter: 2006Q4

REPORT INFORMATION
  Report Type: 
  Country: None (occurrence: None)
  Receive Date: 20061206
  Receipt Date: 20061124
  Transmission Date: 20070319
  Serious: Yes (Hospitalization, Other)
  Sender: FDA-Public Use
  Company Number: GXKR2006ES07722

PATIENT
  Age: 68 Year
  Sex: Male

DRUGS (2)
  1. PARACETAMOL (NGX)(PARACETAMOL) UNKNOWN [Suspect]
  2. CORTICOSTEROIDS [Concomitant]

REACTIONS (1)
  - STEVENS-JOHNSON SYNDROME [None]
